FAERS Safety Report 6668765-6 (Version None)
Quarter: 2010Q2

REPORT INFORMATION
  Report Type: 
  Country: None (occurrence: None)
  Receive Date: 20100406
  Receipt Date: 20100326
  Transmission Date: 20101027
  Serious: Yes (Hospitalization)
  Sender: FDA-Public Use
  Company Number: JP-JNJFOC-20100400799

PATIENT
  Sex: Male

DRUGS (6)
  1. CRAVIT [Suspect]
     Indication: NEPHROLITHIASIS
     Route: 048
  2. CRAVIT [Suspect]
     Indication: INFECTION PROPHYLAXIS
     Route: 048
  3. ACTOS [Concomitant]
     Indication: DIABETES MELLITUS
     Route: 048
  4. NORVASC [Concomitant]
     Indication: HYPERTENSION
     Route: 048
  5. ALL OTHER THERAPEUTIC PRODUCT [Concomitant]
     Indication: HYPERLIPIDAEMIA
     Route: 048
  6. MIGLITOL [Concomitant]
     Indication: DIABETES MELLITUS
     Route: 048

REACTIONS (2)
  - ANAPHYLACTIC SHOCK [None]
  - TOXIC SKIN ERUPTION [None]
